FAERS Safety Report 8522339-0 (Version None)
Quarter: 2012Q3

REPORT INFORMATION
  Report Type: 
  Country: None (occurrence: None)
  Receive Date: 20120719
  Receipt Date: 20120712
  Transmission Date: 20120928
  Serious: Yes (Other)
  Sender: FDA-Public Use
  Company Number: CHPA2012NZ014885

PATIENT
  Age: 58 Year
  Sex: Female

DRUGS (4)
  1. ANTIBIOTICS [Concomitant]
     Indication: GASTROINTESTINAL INFECTION
     Dosage: UNK, UNK
  2. HABITROL [Suspect]
     Indication: SMOKING CESSATION THERAPY
     Dosage: 21 MG, QD
     Route: 062
     Dates: start: 20120530, end: 20120530
  3. HABITROL [Suspect]
     Dosage: 14 MG, QD
     Route: 062
     Dates: start: 20120601, end: 20120622
  4. NICOTINE [Suspect]
     Indication: SMOKING CESSATION THERAPY
     Dosage: 1 MG, UNK
     Route: 002
     Dates: start: 20120530, end: 20120531

REACTIONS (9)
  - PALPITATIONS [None]
  - THROMBOSIS [None]
  - IRRITABLE BOWEL SYNDROME [None]
  - RECTAL DISCHARGE [None]
  - TREATMENT NONCOMPLIANCE [None]
  - OCULAR HYPERAEMIA [None]
  - FEELING ABNORMAL [None]
  - OVERDOSE [None]
  - NAUSEA [None]
